FAERS Safety Report 9997756 (Version 1)
Quarter: 2014Q1

REPORT INFORMATION
  Report Type: Spontaneous
  Country: US (occurrence: None)
  Receive Date: 20140304
  Receipt Date: 20140304
  Transmission Date: 20141002
  Serious: Yes (Hospitalization, Other)
  Sender: FDA-Public Use
  Company Number: RB-50195-2013

PATIENT
  Sex: Male

DRUGS (5)
  1. SUBOXONE [Suspect]
     Indication: DRUG DEPENDENCE
     Route: 064
     Dates: end: 20120606
  2. SUBUTEX [Suspect]
     Indication: DRUG DEPENDENCE
     Route: 064
     Dates: start: 20120606, end: 20130127
  3. ZOFRAN [Suspect]
     Indication: NAUSEA
     Route: 064
     Dates: start: 20120606, end: 2012
  4. CELEXA [Suspect]
     Indication: ANXIETY
     Route: 064
     Dates: start: 201204, end: 20120606
  5. NICOTINE [Suspect]
     Indication: PRODUCT USED FOR UNKNOWN INDICATION
     Route: 064
     Dates: start: 201204, end: 20130127

REACTIONS (3)
  - Foetal exposure during pregnancy [None]
  - Drug withdrawal syndrome neonatal [None]
  - Exposure during breast feeding [None]
